FAERS Safety Report 7943383-8 (Version None)
Quarter: 2011Q4

REPORT INFORMATION
  Report Type: 
  Country: None (occurrence: None)
  Receive Date: 20111128
  Receipt Date: 20111117
  Transmission Date: 20120403
  Serious: Yes (Hospitalization)
  Sender: FDA-Public Use
  Company Number: US-BAYER-201027309NA

PATIENT
  Age: 36 Year
  Sex: Female
  Weight: 95.238 kg

DRUGS (5)
  1. YASMIN [Suspect]
     Indication: CONTRACEPTION
     Dosage: UNK UNK, QD
     Route: 048
     Dates: start: 20050721, end: 20100207
  2. BECONASE AQ [Concomitant]
     Indication: ACUTE SINUSITIS
     Dosage: UNK
     Dates: start: 20091231
  3. AUGMENTIN [Concomitant]
     Indication: ACUTE SINUSITIS
     Dosage: 500 MG, TID
     Route: 048
     Dates: start: 20101231
  4. CHRISTAMIN [Concomitant]
     Dosage: UNK
     Dates: start: 20100207
  5. ALLEGRA-D 12 HOUR [Concomitant]
     Indication: HYPERSENSITIVITY
     Dosage: UNK UNK, PRN
     Route: 048

REACTIONS (13)
  - ANXIETY [None]
  - PSYCHOLOGICAL TRAUMA [None]
  - CHEST PAIN [None]
  - PAIN IN EXTREMITY [None]
  - PULMONARY EMBOLISM [None]
  - DYSPNOEA [None]
  - INJURY [None]
  - DEEP VEIN THROMBOSIS [None]
  - FEAR OF DISEASE [None]
  - PAIN [None]
  - EMOTIONAL DISTRESS [None]
  - TACHYCARDIA [None]
  - CHOLELITHIASIS [None]
